FAERS Safety Report 4630928-9 (Version None)
Quarter: 2005Q2

REPORT INFORMATION
  Report Type: 
  Country: None (occurrence: None)
  Receive Date: 20050407
  Receipt Date: 20050407
  Transmission Date: 20051028
  Serious: Yes (Other)
  Sender: FDA-Public Use
  Company Number: None

PATIENT
  Age: 61 Year
  Sex: Female

DRUGS (15)
  1. GLYBURIDE AND METFORMIN HCL [Suspect]
     Indication: DIABETES MELLITUS
     Dosage: 1 TAB PO BID
     Route: 048
  2. METHOCARBAMOL [Concomitant]
  3. LORTAB GENERIC [Concomitant]
  4. AMITRIPTYLINE HCL TAB [Concomitant]
  5. COZAAR [Concomitant]
  6. NAPROXEN [Concomitant]
  7. GABAPENTIN [Concomitant]
  8. CYMBALTA [Concomitant]
  9. AMBIEN [Concomitant]
  10. SYNTHROID [Concomitant]
  11. BUMETADINE [Concomitant]
  12. ZOCOR [Concomitant]
  13. PREMARIN [Concomitant]
  14. METHADONE HCL [Concomitant]
  15. LANTUS [Concomitant]

REACTIONS (2)
  - BLOOD PRESSURE DECREASED [None]
  - PHARMACEUTICAL PRODUCT COMPLAINT [None]
